FAERS Safety Report 11988932 (Version 3)
Quarter: 2016Q1

REPORT INFORMATION
  Report Type: Report from Study
  Country: US (occurrence: US)
  Receive Date: 20160202
  Receipt Date: 20160315
  Transmission Date: 20160526
  Serious: Yes (Hospitalization)
  Sender: FDA-Public Use
  Company Number: US-ACTELION-A-NJ2015-123325

PATIENT
  Age: 50 Year
  Sex: Female

DRUGS (4)
  1. ADCIRCA [Concomitant]
     Active Substance: TADALAFIL
  2. AMLODIPINE [Concomitant]
     Active Substance: AMLODIPINE BESYLATE
  3. TRACLEER [Suspect]
     Active Substance: BOSENTAN
     Indication: PULMONARY ARTERIAL HYPERTENSION
     Dosage: UNK
     Route: 048
  4. SILDENAFIL. [Concomitant]
     Active Substance: SILDENAFIL

REACTIONS (20)
  - Throat tightness [Unknown]
  - Restlessness [Unknown]
  - Disturbance in attention [Unknown]
  - Sleep apnoea syndrome [Unknown]
  - Dizziness [Unknown]
  - Hypoaesthesia [Unknown]
  - Paraesthesia [Unknown]
  - Lipoma [Unknown]
  - Oxygen saturation decreased [Unknown]
  - Headache [Unknown]
  - Peripheral swelling [Unknown]
  - Snoring [Unknown]
  - Dyspnoea [Unknown]
  - Nocturnal dyspnoea [Unknown]
  - Upper respiratory tract infection [Unknown]
  - Liver function test increased [Unknown]
  - Malaise [Unknown]
  - Pain in extremity [Unknown]
  - Skin wound [Unknown]
  - Asthenia [Unknown]
